FAERS Safety Report 14538372 (Version 2)
Quarter: 2018Q1

REPORT INFORMATION
  Report Type: Report from Study
  Country: US (occurrence: US)
  Receive Date: 20180216
  Receipt Date: 20180221
  Transmission Date: 20180509
  Serious: No
  Sender: FDA-Public Use
  Company Number: PHEH2018US004867

PATIENT
  Sex: Male

DRUGS (2)
  1. COSENTYX [Suspect]
     Active Substance: SECUKINUMAB
     Indication: PRODUCT USED FOR UNKNOWN INDICATION
     Dosage: 300 MG, QMO
     Route: 058
  2. COSENTYX [Suspect]
     Active Substance: SECUKINUMAB
     Dosage: 2 X 150 MG SHOTS, QMO
     Route: 058

REACTIONS (15)
  - Arthritis [Unknown]
  - Inappropriate schedule of drug administration [Unknown]
  - Psoriasis [Not Recovered/Not Resolved]
  - Nail discolouration [Unknown]
  - Skin exfoliation [Unknown]
  - Speech disorder [Unknown]
  - Oropharyngeal pain [Unknown]
  - Distractibility [Unknown]
  - Movement disorder [Recovering/Resolving]
  - Stress [Unknown]
  - Swelling [Unknown]
  - Skin discolouration [Unknown]
  - Skin depigmentation [Unknown]
  - Injection site pain [Unknown]
  - Diarrhoea [Recovering/Resolving]
